FAERS Safety Report 9557690 (Version 1)
Quarter: 2013Q3

REPORT INFORMATION
  Report Type: Spontaneous
  Country: US (occurrence: None)
  Receive Date: 20130724
  Receipt Date: 20130724
  Transmission Date: 20140515
  Serious: Yes (Hospitalization, Other)
  Sender: FDA-Public Use
  Company Number: PHEH2012US018509

PATIENT
  Sex: Female

DRUGS (9)
  1. GLEEVEC (IMATINIB) [Suspect]
     Indication: CHRONIC MYELOID LEUKAEMIA
     Route: 048
  2. CARDIZEM (DILTIAZEM HYDROCHLORIDE) [Concomitant]
  3. LOPRESSOR (METOPROLOL TARTRATE) [Concomitant]
  4. DIGOXIN [Concomitant]
  5. ZOCOR (SIMVASTATIN) [Concomitant]
  6. GABAPENTIN [Concomitant]
  7. ECOTIN [Concomitant]
  8. LASIX (FUROSEMIDE) [Concomitant]
  9. OPTHALMOLOGICALS (NO INGREDIENTS/SUBSTANCES) [Concomitant]

REACTIONS (6)
  - Atrial fibrillation [None]
  - Clostridium difficile colitis [None]
  - Chronic myeloid leukaemia [None]
  - Malignant neoplasm progression [None]
  - Nausea [None]
  - Vomiting [None]
